APPROVED DRUG PRODUCT: ZOLYMBUS
Active Ingredient: BIMATOPROST
Strength: 0.01%
Dosage Form/Route: GEL;OPHTHALMIC
Application: N217307 | Product #001
Applicant: THEA PHARMA INC
Approved: Sep 9, 2025 | RLD: Yes | RS: Yes | Type: RX

PATENTS:
Patent 10314780 | Expires: Jun 8, 2036

EXCLUSIVITY:
Code: NDF | Date: Sep 9, 2028